FAERS Safety Report 13388104 (Version 3)
Quarter: 2017Q2

REPORT INFORMATION
  Report Type: Report from Study
  Country: IT (occurrence: IT)
  Receive Date: 20170330
  Receipt Date: 20170426
  Transmission Date: 20170830
  Serious: Yes (Hospitalization, Other)
  Sender: FDA-Public Use
  Company Number: IT-009507513-1703ITA013292

PATIENT
  Age: 70 Year
  Sex: Female
  Weight: 55 kg

DRUGS (2)
  1. LERCANIDIPINE [Concomitant]
     Active Substance: LERCANIDIPINE
     Indication: HYPERTENSION
     Dosage: UNK
     Route: 048
     Dates: start: 20160601, end: 20161216
  2. EZETROL 10 MG COMPRESSE [Suspect]
     Active Substance: EZETIMIBE
     Indication: HYPERCHOLESTEROLAEMIA
     Dosage: 10 MG, QD
     Route: 048
     Dates: start: 20160601, end: 20161216

REACTIONS (2)
  - Rhabdomyolysis [Recovering/Resolving]
  - Gastroenteritis [Recovering/Resolving]

NARRATIVE: CASE EVENT DATE: 2016
